FAERS Safety Report 12990775 (Version 1)
Quarter: 2016Q4

REPORT INFORMATION
  Report Type: Report from Study
  Country: PH (occurrence: PH)
  Receive Date: 20161201
  Receipt Date: 20161201
  Transmission Date: 20170207
  Serious: Yes (Life-Threatening, Hospitalization, Other)
  Sender: FDA-Public Use
  Company Number: PH-JNJFOC-20160222944

PATIENT
  Sex: Female
  Weight: 84 kg

DRUGS (5)
  1. ALDOMET [Concomitant]
     Active Substance: METHYLDOPA
     Indication: PROPHYLAXIS
     Route: 048
  2. CALCEBONE [Concomitant]
     Indication: MINERAL SUPPLEMENTATION
     Route: 048
  3. STELARA [Suspect]
     Active Substance: USTEKINUMAB
     Indication: PSORIASIS
     Route: 058
     Dates: start: 20151214
  4. FERROUS GLUCONATE [Concomitant]
     Active Substance: FERROUS GLUCONATE
     Indication: MINERAL SUPPLEMENTATION
     Route: 048
  5. STELARA [Suspect]
     Active Substance: USTEKINUMAB
     Indication: PSORIASIS
     Route: 058
     Dates: start: 20151116

REACTIONS (2)
  - Exposure during pregnancy [Recovered/Resolved]
  - Eclampsia [Unknown]
